FAERS Safety Report 13290401 (Version 1)
Quarter: 2017Q1

REPORT INFORMATION
  Report Type: Spontaneous
  Country: US (occurrence: US)
  Receive Date: 20170302
  Receipt Date: 20170302
  Transmission Date: 20170428
  Serious: No
  Sender: FDA-Public Use
  Company Number: US-BAYER-2017-037297

PATIENT
  Age: 56 Year
  Sex: Female

DRUGS (1)
  1. CLIMARA PRO [Suspect]
     Active Substance: ESTRADIOL\LEVONORGESTREL
     Indication: POSTMENOPAUSE
     Dosage: 0.045/0.015MG / PATCH
     Route: 062
     Dates: start: 201612

REACTIONS (3)
  - Muscle spasms [Unknown]
  - Product physical issue [Unknown]
  - Product adhesion issue [Unknown]
